FAERS Safety Report 5927011-9 (Version None)
Quarter: 2008Q4

REPORT INFORMATION
  Report Type: 
  Country: None (occurrence: None)
  Receive Date: 20081021
  Receipt Date: 20081021
  Transmission Date: 20090506
  Serious: Yes (Other)
  Sender: FDA-Public Use
  Company Number: None

PATIENT
  Age: 23 Year
  Sex: Female
  Weight: 62.5964 kg

DRUGS (3)
  1. LEVAQUIN [Suspect]
     Indication: URINARY TRACT INFECTION
     Dosage: ONE TABLET ONCE A DAY PO
     Route: 048
     Dates: start: 20080829, end: 20080831
  2. CEFADROXIL [Concomitant]
  3. ULTRACEF [Concomitant]

REACTIONS (3)
  - ARTHRALGIA [None]
  - ASTHENIA [None]
  - NO THERAPEUTIC RESPONSE [None]
